FAERS Safety Report 9771326 (Version 1)
Quarter: 2013Q4

REPORT INFORMATION
  Report Type: Report from Study
  Country: DE (occurrence: DE)
  Receive Date: 20131218
  Receipt Date: 20131218
  Transmission Date: 20140711
  Serious: Yes (Hospitalization)
  Sender: FDA-Public Use
  Company Number: DE-AMGEN-DEUCT2013088797

PATIENT
  Age: 67 Year
  Sex: Female

DRUGS (4)
  1. ETANERCEPT [Suspect]
     Indication: PRODUCT USED FOR UNKNOWN INDICATION
     Dosage: 50 MG, WEEKLY
     Route: 065
  2. MTX                                /00113802/ [Concomitant]
     Dosage: 10 MG, WEEKLY
  3. PREDNISOLON                        /00016201/ [Concomitant]
     Dosage: UNK
  4. NOVAMINSULFON [Concomitant]
     Dosage: UNK

REACTIONS (1)
  - Urinary tract infection [Recovered/Resolved]
